FAERS Safety Report 8649245 (Version 3)
Quarter: 2012Q4

REPORT INFORMATION
  Report Type: 
  Country: JP (occurrence: JP)
  Receive Date: 20120705
  Receipt Date: 20121126
  Transmission Date: 20130627
  Serious: Yes (Other)
  Sender: FDA-Public Use
  Company Number: JP-ELI_LILLY_AND_COMPANY-JP201206008529

PATIENT
  Age: 77 Year
  Sex: Female
  Weight: 36 kg

DRUGS (7)
  1. CYMBALTA [Suspect]
     Indication: DEPRESSION
     Dosage: 20 mg, qd
     Route: 048
  2. CYMBALTA [Suspect]
     Dosage: 40 mg, qd
     Route: 048
     Dates: end: 2012
  3. CYMBALTA [Suspect]
     Dosage: 60 mg, qd
     Route: 048
  4. REFLEX                             /01293201/ [Concomitant]
     Indication: DEPRESSION
     Dosage: UNK
     Route: 048
  5. LEXAPRO [Concomitant]
     Indication: DEPRESSION
     Dosage: 10 mg, qd
     Route: 048
     Dates: start: 20120512, end: 20120517
  6. REMERON [Concomitant]
     Indication: DEPRESSION
     Dosage: 45 mg, qd
     Route: 048
     Dates: start: 20120403, end: 20120809
  7. ABILIFY [Concomitant]
     Indication: DEPRESSION
     Dosage: 12 mg, qd
     Route: 048
     Dates: start: 20120413, end: 20120625

REACTIONS (1)
  - Stupor [Recovered/Resolved]
